FAERS Safety Report 10783110 (Version 3)
Quarter: 2015Q3

REPORT INFORMATION
  Report Type: Report from Study
  Country: GB (occurrence: GB)
  Receive Date: 20150210
  Receipt Date: 20150918
  Transmission Date: 20151125
  Serious: Yes (Death, Other)
  Sender: FDA-Public Use
  Company Number: GB-CELGENE-167-20785-13114258

PATIENT
  Age: 83 Year
  Sex: Male

DRUGS (4)
  1. CYCLOPHOSPHAMIDE. [Suspect]
     Active Substance: CYCLOPHOSPHAMIDE
     Indication: PLASMA CELL MYELOMA
     Dosage: CY 1-2 2000 AND CY 3-6 1500
     Route: 065
     Dates: start: 20110127, end: 20110728
  2. DEXAMETHASONE. [Suspect]
     Active Substance: DEXAMETHASONE
     Indication: PLASMA CELL MYELOMA
     Route: 065
     Dates: start: 20110127, end: 20110728
  3. THALIDOMIDE [Suspect]
     Active Substance: THALIDOMIDE
     Indication: PLASMA CELL MYELOMA
     Dosage: DIFFERENT EACH CYCLE
     Route: 048
     Dates: start: 20110127, end: 20110728
  4. REVLIMID [Suspect]
     Active Substance: LENALIDOMIDE
     Indication: PLASMA CELL MYELOMA
     Dosage: 160 MILLIGRAM
     Route: 048
     Dates: start: 20110728, end: 20110814

REACTIONS (1)
  - Oesophageal squamous cell carcinoma [Fatal]

NARRATIVE: CASE EVENT DATE: 20130717
